FAERS Safety Report 10458049 (Version 1)
Quarter: 2014Q3

REPORT INFORMATION
  Report Type: Spontaneous
  Country: US (occurrence: US)
  Receive Date: 20140916
  Receipt Date: 20140916
  Transmission Date: 20150326
  Serious: Yes (Other)
  Sender: FDA-Public Use
  Company Number: PHHY2014US117103

PATIENT
  Age: 6 Year
  Sex: Male

DRUGS (5)
  1. PREDNISOLONE. [Suspect]
     Active Substance: PREDNISOLONE
     Dosage: 1 MG/KG, UNK
     Route: 048
  2. PREDNISOLONE. [Suspect]
     Active Substance: PREDNISOLONE
     Dosage: 2 MG/KG, UNK
     Route: 048
  3. METHYLPREDNISOLONE [Suspect]
     Active Substance: METHYLPREDNISOLONE
  4. ACETYLSALICYLIC ACID [Concomitant]
     Active Substance: ASPIRIN
  5. PREDNISOLONE. [Suspect]
     Active Substance: PREDNISOLONE
     Dosage: 2 MG/KG, UNK
     Route: 048

REACTIONS (8)
  - Cerebrovascular disorder [Recovered/Resolved]
  - Muscular weakness [Recovered/Resolved]
  - Decreased immune responsiveness [Unknown]
  - Herpes zoster [Recovered/Resolved]
  - Cerebral artery stenosis [Recovered/Resolved]
  - Paraesthesia [Recovered/Resolved]
  - Central nervous system infection [Recovered/Resolved]
  - Pleocytosis [Recovered/Resolved]
